FAERS Safety Report 6217909-9 (Version None)
Quarter: 2009Q2

REPORT INFORMATION
  Report Type: 
  Country: None (occurrence: None)
  Receive Date: 20090608
  Receipt Date: 20090601
  Transmission Date: 20091009
  Serious: Yes (Other)
  Sender: FDA-Public Use
  Company Number: GB-ASTRAZENECA-2009GB01247

PATIENT
  Age: 54 Year
  Sex: Male

DRUGS (1)
  1. ROSUVASTATIN CALCIUM [Suspect]
     Indication: HYPERCHOLESTEROLAEMIA
     Dosage: 20MG
     Route: 048
     Dates: start: 20061113, end: 20090301

REACTIONS (4)
  - FATIGUE [None]
  - MUSCULAR WEAKNESS [None]
  - NEUROPATHY PERIPHERAL [None]
  - PARAESTHESIA [None]
